FAERS Safety Report 6414275-0 (Version None)
Quarter: 2009Q4

REPORT INFORMATION
  Report Type: 
  Country: None (occurrence: None)
  Receive Date: 20091026
  Receipt Date: 20091014
  Transmission Date: 20100525
  Serious: Yes (Death)
  Sender: FDA-Public Use
  Company Number: JP-PFIZER INC-2009284252

PATIENT
  Age: 9 Month

DRUGS (1)
  1. REVATIO [Suspect]
     Dosage: 3 MG, 2X/DAY
     Route: 048
     Dates: start: 20090806, end: 20090809

REACTIONS (4)
  - CIRCULATORY COLLAPSE [None]
  - DYSPEPSIA [None]
  - PNEUMOTHORAX [None]
  - PULMONARY HYPERTENSION [None]
